FAERS Safety Report 21125593 (Version 1)
Quarter: 2022Q3

REPORT INFORMATION
  Report Type: Spontaneous
  Country: FR (occurrence: FR)
  Receive Date: 20220725
  Receipt Date: 20220725
  Transmission Date: 20221027
  Serious: Yes (Hospitalization)
  Sender: FDA-Public Use
  Company Number: None

PATIENT
  Age: 52 Year
  Sex: Female

DRUGS (7)
  1. TRIMEBUTINE [Suspect]
     Active Substance: TRIMEBUTINE
     Indication: Analgesic therapy
     Dosage: UNK
     Route: 048
     Dates: start: 20220519, end: 20220615
  2. PHLOROGLUCINOL [Suspect]
     Active Substance: PHLOROGLUCINOL
     Indication: Analgesic therapy
     Dosage: UNK
     Route: 048
     Dates: start: 20220515, end: 20220619
  3. VANCOMYCIN [Suspect]
     Active Substance: VANCOMYCIN
     Indication: Peritonitis
     Dosage: UNK
     Route: 042
     Dates: start: 20220526, end: 20220613
  4. CASPOFUNGIN [Suspect]
     Active Substance: CASPOFUNGIN
     Indication: Peritonitis
     Dosage: UNK
     Route: 042
     Dates: start: 20220610, end: 20220620
  5. MORPHINE [Suspect]
     Active Substance: MORPHINE
     Indication: Analgesic therapy
     Dosage: UNK
     Route: 042
     Dates: start: 20220603, end: 20220622
  6. IOMERON [Suspect]
     Active Substance: IOMEPROL
     Indication: Product used for unknown indication
     Dosage: UNK
     Route: 042
     Dates: start: 20220525, end: 20220525
  7. PIPERACILLIN SODIUM\TAZOBACTAM SODIUM [Suspect]
     Active Substance: PIPERACILLIN SODIUM\TAZOBACTAM SODIUM
     Indication: Peritonitis
     Dosage: UNK
     Route: 042
     Dates: start: 20220526, end: 20220620

REACTIONS (1)
  - Drug reaction with eosinophilia and systemic symptoms [Recovering/Resolving]

NARRATIVE: CASE EVENT DATE: 20220613
